FAERS Safety Report 10137068 (Version 1)
Quarter: 2014Q2

REPORT INFORMATION
  Report Type: Spontaneous
  Country: US (occurrence: None)
  Receive Date: 20140425
  Receipt Date: 20140425
  Transmission Date: 20141212
  Serious: Yes (Hospitalization)
  Sender: FDA-Public Use
  Company Number: FK201401483

PATIENT
  Age: 24 Year
  Sex: Male

DRUGS (3)
  1. BLEOMYCIN [Suspect]
     Indication: METASTATIC CHORIOCARCINOMA
  2. CISPLATIN [Suspect]
     Indication: METASTATIC CHORIOCARCINOMA
  3. ETOPOSIDE (ETOPOSIDE) [Concomitant]
     Indication: METASTATIC CHORIOCARCINOMA

REACTIONS (4)
  - Febrile neutropenia [None]
  - Pulmonary mass [None]
  - Condition aggravated [None]
  - Human chorionic gonadotropin decreased [None]
